FAERS Safety Report 6715345-X (Version None)
Quarter: 2010Q2

REPORT INFORMATION
  Report Type: 
  Country: None (occurrence: None)
  Receive Date: 20100507
  Receipt Date: 20100429
  Transmission Date: 20101027
  Serious: Yes (Other)
  Sender: FDA-Public Use
  Company Number: US-WYE-H03959208

PATIENT
  Sex: Female
  Weight: 77.18 kg

DRUGS (3)
  1. PREMPRO [Suspect]
  2. PROVERA [Suspect]
  3. CYCRIN [Suspect]

REACTIONS (1)
  - BREAST CANCER METASTATIC [None]
